FAERS Safety Report 11869273 (Version 6)
Quarter: 2019Q3

REPORT INFORMATION
  Report Type: Report from Study
  Country: CA (occurrence: CA)
  Receive Date: 20151226
  Receipt Date: 20190909
  Transmission Date: 20191004
  Serious: Yes (Hospitalization, Other)
  Sender: FDA-Public Use
  Company Number: PHHY2015CA078058

PATIENT
  Sex: Male

DRUGS (3)
  1. GLEEVEC [Suspect]
     Active Substance: IMATINIB MESYLATE
     Indication: GASTROINTESTINAL STROMAL TUMOUR
     Dosage: 400 MG, QD
     Route: 048
     Dates: start: 20150309
  2. GLEEVEC [Suspect]
     Active Substance: IMATINIB MESYLATE
     Dosage: 400 MG, BID
     Route: 048
     Dates: start: 201906
  3. GLEEVEC [Suspect]
     Active Substance: IMATINIB MESYLATE
     Dosage: 400 MG, QD
     Route: 048

REACTIONS (14)
  - Post procedural complication [Unknown]
  - Post procedural infection [Recovering/Resolving]
  - Gait disturbance [Unknown]
  - Decreased appetite [Not Recovered/Not Resolved]
  - Pleural effusion [Unknown]
  - Skin sensitisation [Unknown]
  - Haemoglobin increased [Unknown]
  - Photosensitivity reaction [Unknown]
  - Taste disorder [Unknown]
  - Malignant neoplasm progression [Not Recovered/Not Resolved]
  - Asthenia [Unknown]
  - Cellulitis [Unknown]
  - Fatigue [Unknown]
  - Gastrointestinal stromal tumour [Not Recovered/Not Resolved]

NARRATIVE: CASE EVENT DATE: 2019
